FAERS Safety Report 5659479-X (Version None)
Quarter: 2008Q1

REPORT INFORMATION
  Report Type: 
  Country: None (occurrence: None)
  Receive Date: 20080311
  Receipt Date: 20080304
  Transmission Date: 20080703
  Serious: Yes (Death, Other)
  Sender: FDA-Public Use
  Company Number: GB-AVENTIS-200812105GDDC

PATIENT
  Age: 59 Year
  Sex: Male

DRUGS (4)
  1. DOCETAXEL [Suspect]
     Indication: PROSTATE CANCER
     Dosage: DOSE: UNK
     Route: 042
     Dates: start: 20071211, end: 20071211
  2. PREDNISOLONE [Suspect]
     Indication: PROSTATE CANCER
     Dosage: DOSE: UNK
  3. ZOLEDRONIC ACID [Suspect]
     Indication: PROSTATE CANCER
     Dosage: DOSE: UNK
     Dates: start: 20080208, end: 20080208
  4. STRONTIUM CHLORIDE SR-89 [Suspect]
     Indication: PROSTATE CANCER
     Dosage: DOSE: UNK
     Dates: start: 20080117, end: 20080117

REACTIONS (4)
  - CONFUSIONAL STATE [None]
  - DEATH [None]
  - INFECTION [None]
  - RENAL FAILURE [None]
